FAERS Safety Report 6971902-7 (Version None)
Quarter: 2010Q3

REPORT INFORMATION
  Report Type: 
  Country: None (occurrence: None)
  Receive Date: 20100908
  Receipt Date: 20100830
  Transmission Date: 20110219
  Serious: Yes (Hospitalization)
  Sender: FDA-Public Use
  Company Number: US-SANOFI-AVENTIS-2010SA052610

PATIENT
  Sex: Female

DRUGS (2)
  1. LANTUS [Suspect]
     Dosage: DOSE:30 UNIT(S)
     Route: 058
     Dates: start: 20000101
  2. NOVOLIN R [Concomitant]

REACTIONS (5)
  - APHASIA [None]
  - BLOOD GLUCOSE DECREASED [None]
  - CEREBROVASCULAR ACCIDENT [None]
  - HYPERGLYCAEMIA [None]
  - MOBILITY DECREASED [None]
